FAERS Safety Report 23993647 (Version 1)
Quarter: 2024Q2

REPORT INFORMATION
  Report Type: Spontaneous
  Country: US (occurrence: None)
  Receive Date: 20240618
  Receipt Date: 20240618
  Transmission Date: 20240716
  Serious: Yes (Other)
  Sender: FDA-Public Use
  Company Number: None

PATIENT
  Age: 73 Year
  Sex: Female

DRUGS (23)
  1. AMBRISENTAN [Suspect]
     Active Substance: AMBRISENTAN
     Indication: Pulmonary hypertension
     Dosage: FREQUENCY : DAILY;?
     Route: 048
     Dates: start: 20100218
  2. SILDENAFIL [Concomitant]
     Active Substance: SILDENAFIL
  3. TREPROSTINIL [Concomitant]
     Active Substance: TREPROSTINIL
  4. DILTIZEM [Concomitant]
  5. LANSOPRAZOLE [Concomitant]
     Active Substance: LANSOPRAZOLE
  6. SPIRONOLACTONE [Concomitant]
     Active Substance: SPIRONOLACTONE
  7. BUMETANIDE [Concomitant]
     Active Substance: BUMETANIDE
  8. DIGOXIN [Concomitant]
     Active Substance: DIGOXIN
  9. WARFARIN [Concomitant]
     Active Substance: WARFARIN
  10. VITAMINS [Concomitant]
     Active Substance: VITAMINS
  11. ALBUTEROL SULFATE [Concomitant]
     Active Substance: ALBUTEROL SULFATE
  12. BENZONATATE [Concomitant]
     Active Substance: BENZONATATE
  13. ONDANSETRON [Concomitant]
     Active Substance: ONDANSETRON
  14. ASTELIN [Concomitant]
     Active Substance: AZELASTINE HYDROCHLORIDE
  15. FLONASE [Concomitant]
     Active Substance: FLUTICASONE PROPIONATE
  16. CALCIUM-MAGNESIUM-ZINC [Concomitant]
  17. DOCUSATE SODIUM [Concomitant]
     Active Substance: DOCUSATE SODIUM
  18. LORATADINE [Concomitant]
     Active Substance: LORATADINE
  19. SENOKOT [Concomitant]
     Active Substance: SENNOSIDES
  20. BISACODYL [Concomitant]
     Active Substance: BISACODYL
  21. PROBIOTICS NOS [Concomitant]
     Active Substance: PROBIOTICS NOS
  22. VITAMIN D3 [Concomitant]
     Active Substance: CHOLECALCIFEROL
  23. ACETAMINOPHEN [Concomitant]
     Active Substance: ACETAMINOPHEN

REACTIONS (1)
  - Palpitations [None]

NARRATIVE: CASE EVENT DATE: 20240610
